FAERS Safety Report 7830855-X (Version None)
Quarter: 2011Q4

REPORT INFORMATION
  Report Type: 
  Country: None (occurrence: None)
  Receive Date: 20111021
  Receipt Date: 20111014
  Transmission Date: 20120403
  Serious: Yes (Other)
  Sender: FDA-Public Use
  Company Number: DE-PFIZER INC-2011200500

PATIENT
  Age: 67 Year
  Sex: Female
  Weight: 79 kg

DRUGS (1)
  1. AROMASIN [Suspect]
     Indication: BREAST CANCER FEMALE
     Dosage: 25 MG, 1X/DAY
     Route: 048
     Dates: start: 20100624

REACTIONS (7)
  - DECREASED APPETITE [None]
  - BONE PAIN [None]
  - WEIGHT INCREASED [None]
  - HOT FLUSH [None]
  - HYPERHIDROSIS [None]
  - SWELLING [None]
  - FATIGUE [None]
